FAERS Safety Report 12452535 (Version 1)
Quarter: 2016Q2

REPORT INFORMATION
  Report Type: Spontaneous
  Country: US (occurrence: US)
  Receive Date: 20160609
  Receipt Date: 20160609
  Transmission Date: 20160815
  Serious: Yes (Other)
  Sender: FDA-Public Use
  Company Number: US-CELGENEUS-USA-2016061304

PATIENT
  Sex: Male

DRUGS (7)
  1. REVLIMID [Suspect]
     Active Substance: LENALIDOMIDE
     Dosage: 15-25 MG
     Route: 048
     Dates: start: 201305
  2. REVLIMID [Suspect]
     Active Substance: LENALIDOMIDE
     Route: 048
     Dates: start: 200908
  3. REVLIMID [Suspect]
     Active Substance: LENALIDOMIDE
     Route: 048
     Dates: start: 201509
  4. REVLIMID [Suspect]
     Active Substance: LENALIDOMIDE
     Dosage: 5-15 MG
     Route: 048
     Dates: start: 201002
  5. REVLIMID [Suspect]
     Active Substance: LENALIDOMIDE
     Dosage: 25-5 MG
     Route: 048
     Dates: start: 201008
  6. REVLIMID [Suspect]
     Active Substance: LENALIDOMIDE
     Route: 048
     Dates: start: 201408
  7. REVLIMID [Suspect]
     Active Substance: LENALIDOMIDE
     Indication: PLASMA CELL MYELOMA
     Route: 048
     Dates: start: 200812

REACTIONS (1)
  - Neutropenia [Not Recovered/Not Resolved]
